FAERS Safety Report 21660803 (Version 1)
Quarter: 2022Q4

REPORT INFORMATION
  Report Type: Report from Study
  Country: US (occurrence: US)
  Receive Date: 20221130
  Receipt Date: 20221130
  Transmission Date: 20230112
  Serious: Yes (Other)
  Sender: FDA-Public Use
  Company Number: US-ABBVIE-4216842

PATIENT
  Age: 74 Year
  Sex: Female

DRUGS (1)
  1. HUMIRA [Suspect]
     Active Substance: ADALIMUMAB
     Indication: Psoriatic arthropathy
     Dosage: CITRATE FREE? FORM STRENGTH: 40 MILLIGRAM
     Route: 058

REACTIONS (4)
  - Arthritis [Unknown]
  - Procedural pain [Recovering/Resolving]
  - Muscle spasms [Recovering/Resolving]
  - Post procedural complication [Recovering/Resolving]

NARRATIVE: CASE EVENT DATE: 20221101
